FAERS Safety Report 4790344-6 (Version None)
Quarter: 2005Q4

REPORT INFORMATION
  Report Type: 
  Country: None (occurrence: None)
  Receive Date: 20051005
  Receipt Date: 20051005
  Transmission Date: 20060501
  Serious: Yes (Life-Threatening)
  Sender: FDA-Public Use
  Company Number: None

PATIENT
  Sex: Male

DRUGS (9)
  1. TACROLIMUS [Suspect]
     Indication: OCULAR HYPERTENSION
     Dosage: 0.5-2.5 MG PO
     Route: 048
     Dates: start: 20040722, end: 20040810
  2. MYCOPHENOLATE [Concomitant]
  3. PREDNISONE [Concomitant]
  4. MYCELEX [Concomitant]
  5. TROCHE [Concomitant]
  6. ACYCLOVIR [Concomitant]
  7. RANITIDINE [Concomitant]
  8. ISOPROTERENOL [Concomitant]
  9. VASOPRESSIN [Concomitant]

REACTIONS (2)
  - OEDEMA [None]
  - RENAL FAILURE ACUTE [None]
